FAERS Safety Report 9176633 (Version 1)
Quarter: 2013Q1

REPORT INFORMATION
  Report Type: Spontaneous
  Country: US (occurrence: None)
  Receive Date: 20130320
  Receipt Date: 20130320
  Transmission Date: 20140127
  Serious: Yes (Death)
  Sender: FDA-Public Use
  Company Number: None

PATIENT
  Age: 56 Year
  Sex: Male

DRUGS (2)
  1. EXPAREL [Suspect]
     Dosage: 20 ML ONCE INFILTRATION
     Dates: start: 20130314
  2. VICODIN [Suspect]
     Dosage: 1 TAB 1-2 TABS/DAY ORAL

REACTIONS (3)
  - Dizziness [None]
  - Fall [None]
  - Cardiac arrest [None]
